FAERS Safety Report 19427531 (Version 1)
Quarter: 2021Q2

REPORT INFORMATION
  Report Type: Spontaneous
  Country: GB (occurrence: GB)
  Receive Date: 20210616
  Receipt Date: 20210616
  Transmission Date: 20210717
  Serious: Yes (Other)
  Sender: FDA-Public Use
  Company Number: GB-ELI_LILLY_AND_COMPANY-GB202106002947

PATIENT
  Age: 62 Year
  Sex: Female
  Weight: 100 kg

DRUGS (24)
  1. ATORVASTATIN [Concomitant]
     Active Substance: ATORVASTATIN
     Dosage: 1 DOSAGE FORM, 4/W
     Route: 065
     Dates: start: 20191022
  2. CLOTRIMAZOLE. [Concomitant]
     Active Substance: CLOTRIMAZOLE
     Dosage: UNK UNK, UNKNOWN
     Route: 065
     Dates: start: 20191220
  3. OMEPRAZOLE. [Concomitant]
     Active Substance: OMEPRAZOLE
     Dosage: 1 DOSAGE FORM, BID
     Route: 065
     Dates: start: 20191022
  4. EPIPEN [Concomitant]
     Active Substance: EPINEPHRINE
     Indication: ALLERGY PROPHYLAXIS
     Dosage: UNK UNK, UNKNOWN
     Route: 065
     Dates: start: 20200506
  5. FERROUS FUMARATE [Concomitant]
     Active Substance: FERROUS FUMARATE
     Dosage: 1 DOSAGE FORM, TID
     Route: 065
     Dates: start: 20210317, end: 20210414
  6. COSMOCOL [Concomitant]
     Dosage: 1 DOSAGE FORM, BID
     Route: 065
     Dates: start: 20210517, end: 20210601
  7. RIVAROXABAN [Concomitant]
     Active Substance: RIVAROXABAN
     Indication: CEREBROVASCULAR ACCIDENT
     Dosage: 1 DOSAGE FORM, DAILY
     Route: 065
     Dates: start: 20191022
  8. ZEROBASE [PARAFFIN, LIQUID] [Concomitant]
     Indication: LICHEN SCLEROSUS
     Dosage: UNK UNK, UNKNOWN
     Route: 065
     Dates: start: 20190510
  9. ANUSOL [BISMUTH OXIDE;BISMUTH SUBGALLATE;MYRO [Concomitant]
     Dosage: UNK UNK, PRN
     Route: 065
     Dates: start: 20201221
  10. CETIRIZINE [Concomitant]
     Active Substance: CETIRIZINE HYDROCHLORIDE
     Indication: ALLERGY PROPHYLAXIS
     Dosage: 1 DOSAGE FORM, DAILY
     Route: 065
     Dates: start: 20191022
  11. CLENIL MODULITE [Concomitant]
     Active Substance: BECLOMETHASONE DIPROPIONATE
     Dosage: 2 DOSAGE FORM, DAILY
     Route: 055
     Dates: start: 20191111
  12. SALAMOL [SALBUTAMOL SULFATE] [Concomitant]
     Active Substance: ALBUTEROL SULFATE
     Indication: ASTHMA
     Dosage: UNK UNK, UNKNOWN
     Route: 055
     Dates: start: 20190503
  13. TRESIBA [Concomitant]
     Active Substance: INSULIN DEGLUDEC
     Dosage: 1 DOSAGE FORM, DAILY
     Route: 065
     Dates: start: 20210426
  14. VAGIFEM [Concomitant]
     Active Substance: ESTRADIOL
     Indication: OESTROGEN DEFICIENCY
     Dosage: 1 DOSAGE FORM, 2/W
     Route: 065
     Dates: start: 20200506
  15. INSULIN GLARGINE [Suspect]
     Active Substance: INSULIN GLARGINE
     Indication: PRODUCT USED FOR UNKNOWN INDICATION
     Dosage: 100 IU/ML, UNKNOWN
     Route: 065
     Dates: start: 20191022
  16. CIPROFLOXACIN. [Concomitant]
     Active Substance: CIPROFLOXACIN
     Dosage: 1 DOSAGE FORM, BID
     Route: 065
     Dates: start: 20201221
  17. NYSTAN [Concomitant]
     Active Substance: NYSTATIN
     Dosage: 1 ML, QID
     Route: 065
     Dates: start: 20191220
  18. SALBUTAMOL [Concomitant]
     Active Substance: ALBUTEROL
     Dosage: 1 DOSAGE FORM, UNKNOWN
     Route: 055
     Dates: start: 20180209, end: 20210330
  19. DERMOVATE [Concomitant]
     Active Substance: CLOBETASOL
     Indication: PRURITUS
     Dosage: UNK UNK, UNKNOWN
     Route: 065
     Dates: start: 20201208
  20. HIBISCRUB [CHLORHEXIDINE GLUCONATE] [Concomitant]
     Active Substance: CHLORHEXIDINE GLUCONATE
     Dosage: UNK UNK, UNKNOWN
     Route: 065
     Dates: start: 20181115
  21. LOSARTAN. [Concomitant]
     Active Substance: LOSARTAN
     Dosage: 1 DOSAGE FORM, DAILY
     Route: 065
     Dates: start: 20191022
  22. SECURON [Concomitant]
     Active Substance: VERAPAMIL HYDROCHLORIDE
     Dosage: 1 DOSAGE FORM, DAILY
     Route: 065
     Dates: start: 20191022
  23. SUKKARTO [Concomitant]
     Active Substance: METFORMIN HYDROCHLORIDE
     Dosage: 4 DOSAGE FORM, BID
     Route: 065
     Dates: start: 20191022, end: 20210528
  24. OTOMIZE [Concomitant]
     Dosage: 1 DOSAGE FORM, TID
     Route: 065
     Dates: start: 20210511, end: 20210525

REACTIONS (3)
  - Syncope [Unknown]
  - Swelling face [Unknown]
  - Flushing [Recovered/Resolved]

NARRATIVE: CASE EVENT DATE: 20210528
